FAERS Safety Report 19827551 (Version 4)
Quarter: 2021Q4

REPORT INFORMATION
  Report Type: Spontaneous
  Country: US (occurrence: US)
  Receive Date: 20210914
  Receipt Date: 20211013
  Transmission Date: 20220304
  Serious: No
  Sender: FDA-Public Use
  Company Number: US-AMGEN-USASP2021139792

PATIENT
  Age: 53 Year
  Sex: Female

DRUGS (2)
  1. NEUPOGEN [Suspect]
     Active Substance: FILGRASTIM
     Indication: Prophylaxis
     Dosage: UNK, AFTER CHEMO CYCLE, RECEIVES FOR 7 DAYS
     Route: 065
  2. NEUPOGEN [Suspect]
     Active Substance: FILGRASTIM
     Dosage: UNK, AFTER CHEMO CYCLE, RECEIVES FOR 7 DAYS
     Route: 065
     Dates: start: 202103

REACTIONS (1)
  - Needle issue [Unknown]

NARRATIVE: CASE EVENT DATE: 20210907
